FAERS Safety Report 9472850 (Version 1)
Quarter: 2013Q3

REPORT INFORMATION
  Report Type: Report from Study
  Country: DE (occurrence: DE)
  Receive Date: 20130823
  Receipt Date: 20130823
  Transmission Date: 20140515
  Serious: Yes (Hospitalization)
  Sender: FDA-Public Use
  Company Number: DE-ABBOTT-13P-062-1134978-00

PATIENT
  Age: 55 Year
  Sex: Male
  Weight: 85 kg

DRUGS (2)
  1. HUMIRA [Suspect]
     Indication: PSORIASIS
     Route: 058
     Dates: start: 200712
  2. HUMIRA [Suspect]

REACTIONS (3)
  - Myocarditis [Recovered/Resolved]
  - Cardiac failure [Recovered/Resolved]
  - Nasopharyngitis [Recovered/Resolved]
